FAERS Safety Report 8827637 (Version 1)
Quarter: 2012Q4

REPORT INFORMATION
  Report Type: 
  Country: CN (occurrence: CN)
  Receive Date: 20121008
  Receipt Date: 20121008
  Transmission Date: 20130627
  Serious: Yes (Other)
  Sender: FDA-Public Use
  Company Number: CN-JNJFOC-20120912605

PATIENT
  Sex: Male

DRUGS (2)
  1. TYLENOL COLD [Suspect]
     Indication: PYREXIA
     Route: 048
     Dates: start: 20090708, end: 20090708
  2. TYLENOL COLD [Suspect]
     Indication: HEADACHE
     Route: 048
     Dates: start: 20090708, end: 20090708

REACTIONS (1)
  - Drug eruption [Recovered/Resolved]
